FAERS Safety Report 5714164-0 (Version None)
Quarter: 2008Q2

REPORT INFORMATION
  Report Type: 
  Country: None (occurrence: None)
  Receive Date: 20080423
  Receipt Date: 20070809
  Transmission Date: 20081010
  Serious: No
  Sender: FDA-Public Use
  Company Number: US-KINGPHARMUSA00001-K200701014

PATIENT

DRUGS (1)
  1. SKELAXIN [Suspect]
     Indication: PAIN
     Dosage: 400 TO 800 MG, QD TO BID
     Route: 048
     Dates: start: 20070723, end: 20070809

REACTIONS (18)
  - BACK PAIN [None]
  - CHEST PAIN [None]
  - CHILLS [None]
  - CONDITION AGGRAVATED [None]
  - DEHYDRATION [None]
  - EAR DISCOMFORT [None]
  - HEADACHE [None]
  - HYPERSENSITIVITY [None]
  - HYPOAESTHESIA ORAL [None]
  - MUSCLE SPASMS [None]
  - MUSCULOSKELETAL PAIN [None]
  - NECK PAIN [None]
  - NERVE COMPRESSION [None]
  - NON-CARDIAC CHEST PAIN [None]
  - PARAESTHESIA ORAL [None]
  - PRURITUS [None]
  - RASH [None]
  - VOMITING [None]
